FAERS Safety Report 5679377-5 (Version None)
Quarter: 2008Q1

REPORT INFORMATION
  Report Type: 
  Country: None (occurrence: None)
  Receive Date: 20080325
  Receipt Date: 20080313
  Transmission Date: 20080703
  Serious: Yes (Other)
  Sender: FDA-Public Use
  Company Number: AE-ELI_LILLY_AND_COMPANY-AE200803005131

PATIENT
  Sex: Female
  Weight: 60 kg

DRUGS (4)
  1. CYMBALTA [Suspect]
     Indication: MAJOR DEPRESSION
     Dosage: 30 MG, UNKNOWN
     Route: 048
     Dates: start: 20070910, end: 20070920
  2. SERTRALINE [Concomitant]
     Indication: DEPRESSION
     Dosage: 200 MG, UNKNOWN
  3. BROMAZEPAM [Concomitant]
     Indication: ANXIETY
     Dosage: 3 MG, UNKNOWN
  4. PROGESTERONE [Concomitant]
     Indication: MENSTRUATION IRREGULAR
     Dosage: UNK, UNKNOWN

REACTIONS (1)
  - MENORRHAGIA [None]
